FAERS Safety Report 16814603 (Version 1)
Quarter: 2019Q3

REPORT INFORMATION
  Report Type: Spontaneous
  Country: FR (occurrence: FR)
  Receive Date: 20190917
  Receipt Date: 20190917
  Transmission Date: 20191005
  Serious: Yes (Life-Threatening, Hospitalization)
  Sender: FDA-Public Use
  Company Number: FR-TEVA-2019-FR-1106803

PATIENT
  Age: 14 Year
  Sex: Male

DRUGS (4)
  1. CHLORHYDRATE DE TRAMADOL [Suspect]
     Active Substance: TRAMADOL HYDROCHLORIDE
     Route: 048
  2. PREGABALINE [Suspect]
     Active Substance: PREGABALIN
     Route: 048
  3. OXAZEPAM. [Suspect]
     Active Substance: OXAZEPAM
     Route: 048
  4. RIVOTRIL [Suspect]
     Active Substance: CLONAZEPAM
     Route: 048

REACTIONS (6)
  - Hypoxia [Recovered/Resolved]
  - Bradycardia [Recovered/Resolved]
  - Intentional overdose [Recovered/Resolved]
  - Head injury [Recovered/Resolved]
  - Coma [Recovered/Resolved]
  - Miosis [Recovered/Resolved]
